FAERS Safety Report 5526922-6 (Version None)
Quarter: 2007Q4

REPORT INFORMATION
  Report Type: 
  Country: None (occurrence: None)
  Receive Date: 20071127
  Receipt Date: 20071115
  Transmission Date: 20080405
  Serious: Yes (Other)
  Sender: FDA-Public Use
  Company Number: DK-PFIZER INC-2007093345

PATIENT
  Sex: Male

DRUGS (2)
  1. CABERGOLINE [Suspect]
     Indication: PARKINSON'S DISEASE
     Dates: start: 19990101, end: 20040501
  2. SIFROL [Concomitant]

REACTIONS (3)
  - ANGINA PECTORIS [None]
  - AORTIC VALVE INCOMPETENCE [None]
  - DYSPNOEA [None]
